FAERS Safety Report 4740292-2 (Version None)
Quarter: 2005Q3

REPORT INFORMATION
  Report Type: 
  Country: None (occurrence: None)
  Receive Date: 20050810
  Receipt Date: 20050321
  Transmission Date: 20060218
  Serious: No
  Sender: FDA-Public Use
  Company Number: US-GLAXOSMITHKLINE-A0550670A

PATIENT
  Age: 64 Year
  Sex: Female

DRUGS (3)
  1. PAROXETINE HCL [Suspect]
     Indication: DEPRESSION
     Dosage: 20MG PER DAY
     Route: 048
     Dates: start: 20050320
  2. LEVOXYL [Concomitant]
     Indication: THYROID DISORDER
  3. HERBS [Concomitant]
     Indication: MULTIPLE ALLERGIES

REACTIONS (4)
  - ANGER [None]
  - NAUSEA [None]
  - STRESS [None]
  - THERAPEUTIC RESPONSE UNEXPECTED [None]
